FAERS Safety Report 19172638 (Version 1)
Quarter: 2021Q2

REPORT INFORMATION
  Report Type: Spontaneous
  Country: CN (occurrence: CN)
  Receive Date: 20210423
  Receipt Date: 20210423
  Transmission Date: 20210717
  Serious: Yes (Hospitalization)
  Sender: FDA-Public Use
  Company Number: CN-ROCHE-2809538

PATIENT
  Age: 58 Year
  Sex: Female
  Weight: 58 kg

DRUGS (8)
  1. GEMCITABINE HYDROCHLORIDE. [Suspect]
     Active Substance: GEMCITABINE HYDROCHLORIDE
     Route: 041
     Dates: start: 20200322, end: 20200322
  2. CISPLATIN. [Suspect]
     Active Substance: CISPLATIN
     Route: 041
     Dates: start: 20200317, end: 20200318
  3. SODIUM CHLORIDE. [Concomitant]
     Active Substance: SODIUM CHLORIDE
     Dosage: LOT NO. L121011412, SOLVENT FOR CISPLATIN FOR INJECTION
     Route: 041
     Dates: start: 20200317, end: 20200318
  4. SODIUM CHLORIDE. [Concomitant]
     Active Substance: SODIUM CHLORIDE
     Dosage: LOT NO. C21011003, SOLVENT FOR GEMCITABINE HYDROCHLORIDE FOR INJECTION
     Dates: start: 20200316, end: 20200316
  5. AVASTIN [Suspect]
     Active Substance: BEVACIZUMAB
     Indication: SQUAMOUS CELL CARCINOMA OF THE CERVIX
     Route: 041
     Dates: start: 20200315, end: 20200315
  6. GEMCITABINE HYDROCHLORIDE. [Suspect]
     Active Substance: GEMCITABINE HYDROCHLORIDE
     Indication: SQUAMOUS CELL CARCINOMA OF THE CERVIX
     Dates: start: 20200316, end: 20200316
  7. CISPLATIN. [Suspect]
     Active Substance: CISPLATIN
     Indication: SQUAMOUS CELL CARCINOMA OF THE CERVIX
     Dates: start: 20200316, end: 20200316
  8. SODIUM CHLORIDE. [Concomitant]
     Active Substance: SODIUM CHLORIDE
     Dosage: LOT NO. L121011412, SOLVENT FOR GEMCITABINE HYDROCHLORIDE FOR INJECTION
     Route: 041
     Dates: start: 20200322, end: 20200322

REACTIONS (8)
  - Dysphagia [Recovering/Resolving]
  - Myelosuppression [Unknown]
  - Agranulocytosis [Recovering/Resolving]
  - Decreased appetite [Recovering/Resolving]
  - Nausea [Recovering/Resolving]
  - Vomiting [Recovering/Resolving]
  - Off label use [Unknown]
  - Pyrexia [Recovering/Resolving]

NARRATIVE: CASE EVENT DATE: 202103
